FAERS Safety Report 9617752 (Version 1)
Quarter: 2013Q4

REPORT INFORMATION
  Report Type: Spontaneous
  Country: CA (occurrence: None)
  Receive Date: 20131009
  Receipt Date: 20131009
  Transmission Date: 20140711
  Serious: Yes (Other)
  Sender: FDA-Public Use
  Company Number: 2013AP008437

PATIENT
  Age: 69 Year
  Sex: Male

DRUGS (22)
  1. GABAPENTIN (GABAPENTIN) [Suspect]
     Indication: ESSENTIAL TREMOR
  2. NEOSTIGMINE(NEOSTIGMINE) [Concomitant]
  3. PYRIDOSTIGMINE(PYRIDOSTIGMINE) [Concomitant]
  4. ATROPINE(ATROPINE) [Concomitant]
  5. CORTICOTROPIN(CORTICOTROPIN) [Concomitant]
  6. MYCOPHENOLATE MOFETIL (MYCOPHENOLATE MOFETIL) [Concomitant]
  7. AZATHIOPRINE(AZATHIOPRINE [Concomitant]
  8. CLONAZEPAM(CLONAZEPAM) [Concomitant]
  9. PRIMIDONE(PRIMIDONE) [Concomitant]
  10. PREDNISONE(PREDNISONE) [Concomitant]
  11. SULFASALAZINE(SULFAZINE) [Concomitant]
  12. AMITRIPTYLINE(AMITRIPTYLINE) [Concomitant]
  13. CORTICOTROPIN(CORTICOTROPIN) [Concomitant]
  14. MYCOPHENOLATE MOFETIL (MYCOPHENOLATE MOFETIL) [Concomitant]
  15. AZATHIOPRINE(AZATHIOPRINE) [Concomitant]
  16. CLONAZEPAM(CLONAZEPAM) [Concomitant]
  17. PRIMIDONE(PRIMIDONE) [Concomitant]
  18. PREDNISONE(PREDNISONE) [Concomitant]
  19. SULFASALAZINE(SULFASALAZINE) [Concomitant]
  20. AMITRIPTYLINE(AMITRIPTYLINE) [Concomitant]
  21. DIAZEPAM(DIAZEPAM) [Concomitant]
  22. PREDNISONE(PREDNISONE( [Concomitant]

REACTIONS (2)
  - Myasthenia gravis [None]
  - Off label use [None]
